FAERS Safety Report 7336195-X (Version None)
Quarter: 2011Q1

REPORT INFORMATION
  Report Type: 
  Country: None (occurrence: None)
  Receive Date: 20110302
  Receipt Date: 20110302
  Transmission Date: 20110831
  Serious: Yes (Other)
  Sender: FDA-Public Use
  Company Number: None

PATIENT
  Age: 48 Year
  Sex: Male
  Weight: 129.2752 kg

DRUGS (1)
  1. OXYCONTIN [Suspect]
     Indication: PAIN
     Dosage: 80MG EVERY 8 HOURS PO
     Route: 048
     Dates: start: 20100715, end: 20110301

REACTIONS (10)
  - METAMORPHOPSIA [None]
  - DEPRESSION [None]
  - DRUG INEFFECTIVE [None]
  - BEDRIDDEN [None]
  - FOREIGN BODY [None]
  - NON-CONSUMMATION [None]
  - CONSTIPATION [None]
  - CONDITION AGGRAVATED [None]
  - PAIN [None]
  - ACTIVITIES OF DAILY LIVING IMPAIRED [None]
